FAERS Safety Report 9432479 (Version 2)
Quarter: 2013Q3

REPORT INFORMATION
  Report Type: Spontaneous
  Country: JP (occurrence: JP)
  Receive Date: 20130731
  Receipt Date: 20130808
  Transmission Date: 20140515
  Serious: Yes (Hospitalization, Other)
  Sender: FDA-Public Use
  Company Number: JP-JNJFOC-20130715188

PATIENT
  Age: 56 Year
  Sex: Male

DRUGS (24)
  1. VINCRISTINE [Suspect]
     Indication: PLASMABLASTIC LYMPHOMA
     Route: 065
     Dates: start: 201007
  2. VINCRISTINE [Suspect]
     Indication: PLASMABLASTIC LYMPHOMA
     Route: 065
     Dates: start: 201006
  3. VINCRISTINE [Suspect]
     Indication: PLASMACYTOMA
     Route: 065
     Dates: start: 201007
  4. VINCRISTINE [Suspect]
     Indication: PLASMACYTOMA
     Route: 065
     Dates: start: 201006
  5. PREDNISOLONE [Suspect]
     Indication: PLASMABLASTIC LYMPHOMA
     Route: 065
     Dates: start: 201007
  6. PREDNISOLONE [Suspect]
     Indication: PLASMABLASTIC LYMPHOMA
     Route: 065
     Dates: start: 201006
  7. PREDNISOLONE [Suspect]
     Indication: PLASMACYTOMA
     Route: 065
     Dates: start: 201006
  8. PREDNISOLONE [Suspect]
     Indication: PLASMACYTOMA
     Route: 065
     Dates: start: 201007
  9. THALIDOMIDE [Suspect]
     Indication: PLASMACYTOMA
     Route: 065
     Dates: start: 201008
  10. THALIDOMIDE [Suspect]
     Indication: PLASMABLASTIC LYMPHOMA
     Route: 065
     Dates: start: 201008
  11. DEXAMETHASONE [Suspect]
     Indication: PLASMACYTOMA
     Route: 065
     Dates: start: 201008
  12. DEXAMETHASONE [Suspect]
     Indication: PLASMABLASTIC LYMPHOMA
     Route: 065
     Dates: start: 201008
  13. DOXORUBICIN [Suspect]
     Indication: PLASMABLASTIC LYMPHOMA
     Route: 042
     Dates: start: 201007
  14. DOXORUBICIN [Suspect]
     Indication: PLASMABLASTIC LYMPHOMA
     Route: 042
     Dates: start: 201006
  15. DOXORUBICIN [Suspect]
     Indication: PLASMACYTOMA
     Route: 042
     Dates: start: 201007
  16. DOXORUBICIN [Suspect]
     Indication: PLASMACYTOMA
     Route: 042
     Dates: start: 201006
  17. DOXORUBICIN [Suspect]
     Indication: PLASMABLASTIC LYMPHOMA
     Route: 065
     Dates: start: 201006
  18. DOXORUBICIN [Suspect]
     Indication: PLASMABLASTIC LYMPHOMA
     Route: 065
     Dates: start: 201007
  19. DOXORUBICIN [Suspect]
     Indication: PLASMACYTOMA
     Route: 065
     Dates: start: 201006
  20. DOXORUBICIN [Suspect]
     Indication: PLASMACYTOMA
     Route: 065
     Dates: start: 201007
  21. CYCLOPHOSPHAMIDE [Suspect]
     Indication: PLASMABLASTIC LYMPHOMA
     Route: 065
     Dates: start: 201006
  22. CYCLOPHOSPHAMIDE [Suspect]
     Indication: PLASMABLASTIC LYMPHOMA
     Route: 065
     Dates: start: 201007
  23. CYCLOPHOSPHAMIDE [Suspect]
     Indication: PLASMACYTOMA
     Route: 065
     Dates: start: 201007
  24. CYCLOPHOSPHAMIDE [Suspect]
     Indication: PLASMACYTOMA
     Route: 065
     Dates: start: 201006

REACTIONS (2)
  - Cardiac failure [Unknown]
  - Disease progression [Unknown]
